FAERS Safety Report 6391348-2 (Version None)
Quarter: 2009Q4

REPORT INFORMATION
  Report Type: 
  Country: None (occurrence: None)
  Receive Date: 20091005
  Receipt Date: 20090921
  Transmission Date: 20100525
  Serious: Yes (Hospitalization, Other)
  Sender: FDA-Public Use
  Company Number: 001777

PATIENT
  Sex: Female
  Weight: 62.1 kg

DRUGS (6)
  1. LACOSAMIDE [Suspect]
     Indication: CONVULSION
     Dosage: (100 MG BID ORAL)
     Route: 048
     Dates: start: 20090703, end: 20090814
  2. KEPPRA [Suspect]
     Indication: CONVULSION
     Dosage: (BID (FROM 7-10 YEARS TO JUL/AUG 2009) ORAL)
     Route: 048
     Dates: end: 20090101
  3. TOPAMAX [Suspect]
     Indication: CONVULSION
     Dosage: (250 MG BID ORAL)
     Route: 048
     Dates: start: 20060101
  4. DILANTIN [Suspect]
     Indication: CONVULSION
     Dosage: (3 DF BID ORAL)
     Route: 048
     Dates: start: 20090811
  5. ATIVAN [Concomitant]
  6. VERSED [Concomitant]

REACTIONS (6)
  - BALANCE DISORDER [None]
  - CONFUSIONAL STATE [None]
  - DIZZINESS [None]
  - GAIT DISTURBANCE [None]
  - GRAND MAL CONVULSION [None]
  - PETIT MAL EPILEPSY [None]
